FAERS Safety Report 20095875 (Version 1)
Quarter: 2021Q4

REPORT INFORMATION
  Report Type: Spontaneous
  Country: CN (occurrence: CN)
  Receive Date: 20211122
  Receipt Date: 20211122
  Transmission Date: 20220303
  Serious: Yes (Other)
  Sender: FDA-Public Use
  Company Number: CN-BAXTER-2021BAX036402

PATIENT
  Age: 61 Year
  Sex: Female
  Weight: 52 kg

DRUGS (1)
  1. METRONIDAZOLE\SODIUM CHLORIDE [Suspect]
     Active Substance: METRONIDAZOLE\SODIUM CHLORIDE
     Indication: Oral infection
     Route: 041
     Dates: start: 20211020, end: 20211020

REACTIONS (3)
  - Blood pressure decreased [Recovering/Resolving]
  - Chest discomfort [Recovering/Resolving]
  - Dizziness [Recovering/Resolving]

NARRATIVE: CASE EVENT DATE: 20211020
